FAERS Safety Report 13864715 (Version 3)
Quarter: 2018Q1

REPORT INFORMATION
  Report Type: Spontaneous
  Country: BR (occurrence: BR)
  Receive Date: 20170814
  Receipt Date: 20180110
  Transmission Date: 20180508
  Serious: Yes (Other)
  Sender: FDA-Public Use
  Company Number: BR-PFIZER INC-2017309026

PATIENT
  Age: 69 Year
  Sex: Female

DRUGS (7)
  1. DOSTINEX [Suspect]
     Active Substance: CABERGOLINE
     Dosage: HALF TABLET OF STRENGTH 0.5 MG (0.25 MG), TWICE A WEEK
     Route: 048
     Dates: start: 2009
  2. ENALAPRIL [Concomitant]
     Active Substance: ENALAPRIL
     Indication: BLOOD CHOLESTEROL ABNORMAL
     Dosage: UNK
  3. DOSTINEX [Suspect]
     Active Substance: CABERGOLINE
     Indication: PITUITARY TUMOUR BENIGN
     Dosage: 1.5 TABLET, WEEKLY (3 HALVES PER WEEK)
     Dates: start: 2007
  4. VASOPRIL [Concomitant]
     Active Substance: FOSINOPRIL
     Indication: HYPERTENSION
     Dosage: 20 MG, TWICE A DAY
  5. SIMVASTATIN. [Concomitant]
     Active Substance: SIMVASTATIN
     Indication: BLOOD CHOLESTEROL ABNORMAL
     Dosage: UNK
     Dates: start: 2007
  6. DOSTINEX [Suspect]
     Active Substance: CABERGOLINE
     Dosage: 0.5 MG (0.25 MG), THRICE A WEEK (MONADYA, WEDNESDAY, AND FRIDAY)
     Route: 048
  7. BENICAR [Concomitant]
     Active Substance: OLMESARTAN MEDOXOMIL
     Indication: BLOOD PRESSURE ABNORMAL
     Dosage: UNK

REACTIONS (10)
  - Clavicle fracture [Recovering/Resolving]
  - Drug ineffective [Not Recovered/Not Resolved]
  - Rash macular [Unknown]
  - Influenza [Recovering/Resolving]
  - Mental disorder [Unknown]
  - Fall [Unknown]
  - Feeling of despair [Not Recovered/Not Resolved]
  - Vision blurred [Not Recovered/Not Resolved]
  - Dizziness [Unknown]
  - Headache [Unknown]

NARRATIVE: CASE EVENT DATE: 20170217
